FAERS Safety Report 18922304 (Version 1)
Quarter: 2021Q1

REPORT INFORMATION
  Report Type: Spontaneous
  Country: US (occurrence: US)
  Receive Date: 20210222
  Receipt Date: 20210222
  Transmission Date: 20210420
  Serious: No
  Sender: FDA-Public Use
  Company Number: None

PATIENT
  Age: 55 Year
  Sex: Male

DRUGS (1)
  1. BAMLANIVIMAB. [Suspect]
     Active Substance: BAMLANIVIMAB
     Indication: COVID-19
     Route: 041

REACTIONS (4)
  - Dizziness [None]
  - Flushing [None]
  - Infusion related reaction [None]
  - Hypotension [None]

NARRATIVE: CASE EVENT DATE: 20210222
